FAERS Safety Report 8206371-2 (Version None)
Quarter: 2012Q1

REPORT INFORMATION
  Report Type: 
  Country: None (occurrence: None)
  Receive Date: 20120313
  Receipt Date: 20120307
  Transmission Date: 20120608
  Serious: Yes (Hospitalization)
  Sender: FDA-Public Use
  Company Number: PHEH2012US005241

PATIENT

DRUGS (1)
  1. CLOZARIL [Suspect]
     Dosage: 600 MG

REACTIONS (2)
  - SCHIZOPHRENIA [None]
  - ANTIPSYCHOTIC DRUG LEVEL INCREASED [None]
